FAERS Safety Report 11294598 (Version 2)
Quarter: 2015Q3

REPORT INFORMATION
  Report Type: Spontaneous
  Country: IT (occurrence: None)
  Receive Date: 20150721
  Receipt Date: 20150723
  Transmission Date: 20151125
  Serious: Yes (Other)
  Sender: FDA-Public Use
  Company Number: DEP_03195_2015

PATIENT
  Age: 83 Year
  Sex: Female

DRUGS (3)
  1. LOBIVON [Concomitant]
     Active Substance: NEBIVOLOL HYDROCHLORIDE
  2. PANTOPRAZOLO ACTAVIS [Concomitant]
  3. PALEXIA [Suspect]
     Active Substance: TAPENTADOL HYDROCHLORIDE
     Indication: PAIN
     Route: 048
     Dates: start: 20150523, end: 20150524

REACTIONS (3)
  - Aggression [None]
  - Hallucination [None]
  - Confusional state [None]

NARRATIVE: CASE EVENT DATE: 20150524
